FAERS Safety Report 22243189 (Version 1)
Quarter: 2023Q2

REPORT INFORMATION
  Report Type: Spontaneous
  Country: MX (occurrence: MX)
  Receive Date: 20230424
  Receipt Date: 20230424
  Transmission Date: 20230721
  Serious: Yes (Hospitalization)
  Sender: FDA-Public Use
  Company Number: MX-SUN PHARMACEUTICAL INDUSTRIES LTD-2023R1-385777

PATIENT
  Age: 52 Year
  Sex: Male

DRUGS (8)
  1. MOXIFLOXACIN [Suspect]
     Active Substance: MOXIFLOXACIN
     Indication: Rhinocerebral mucormycosis
     Dosage: UNK
     Route: 065
  2. CIPROFLOXACIN [Suspect]
     Active Substance: CIPROFLOXACIN
     Indication: Rhinocerebral mucormycosis
     Dosage: UNK
     Route: 065
  3. DORZOLAMIDE [Suspect]
     Active Substance: DORZOLAMIDE
     Indication: Rhinocerebral mucormycosis
     Dosage: UNK
     Route: 065
  4. DEXAMETHASONE [Suspect]
     Active Substance: DEXAMETHASONE
     Indication: Rhinocerebral mucormycosis
     Dosage: UNK
     Route: 065
  5. FLUOROMETHOLONE [Suspect]
     Active Substance: FLUOROMETHOLONE
     Indication: Rhinocerebral mucormycosis
     Dosage: UNK
     Route: 065
  6. NEOMYCIN [Suspect]
     Active Substance: NEOMYCIN
     Indication: Rhinocerebral mucormycosis
     Dosage: UNK
     Route: 065
  7. SODIUM HYALURONATE [Suspect]
     Active Substance: HYALURONATE SODIUM
     Indication: Rhinocerebral mucormycosis
     Dosage: UNK
     Route: 065
  8. TIMOLOL [Suspect]
     Active Substance: TIMOLOL
     Indication: Rhinocerebral mucormycosis
     Dosage: UNK
     Route: 065

REACTIONS (1)
  - Condition aggravated [Unknown]
